FAERS Safety Report 8770111 (Version 2)
Quarter: 2012Q4

REPORT INFORMATION
  Report Type: Report from Study
  Country: JP (occurrence: JP)
  Receive Date: 20120905
  Receipt Date: 20121016
  Transmission Date: 20130627
  Serious: Yes (Hospitalization)
  Sender: FDA-Public Use
  Company Number: JP-009507513-1208JPN012489

PATIENT
  Age: 41 Year
  Sex: Female
  Weight: 52 kg

DRUGS (6)
  1. PEGINTRON [Suspect]
     Indication: HEPATITIS C
     Dosage: 1.5 Microgram per kilogram, qw
     Route: 058
     Dates: start: 20120802, end: 20120804
  2. PEGINTRON [Suspect]
     Dosage: 1.5 Microgram per kilogram, qw
     Route: 058
     Dates: start: 20120809
  3. REBETOL [Suspect]
     Indication: HEPATITIS C
     Dosage: 600 mg, qd
     Route: 048
     Dates: start: 20120802, end: 20120804
  4. REBETOL [Suspect]
     Dosage: 600 mg, qd
     Route: 048
     Dates: start: 20120809
  5. TELAVIC [Suspect]
     Indication: HEPATITIS C
     Dosage: 1500 mg, qd
     Route: 048
     Dates: start: 20120802, end: 20120804
  6. LOXOPROFEN [Concomitant]
     Indication: PROPHYLAXIS
     Dosage: 1 tablet/day as needed
     Route: 048
     Dates: start: 20120802

REACTIONS (1)
  - Toxic skin eruption [Recovered/Resolved]
